FAERS Safety Report 12176433 (Version 4)
Quarter: 2016Q3

REPORT INFORMATION
  Report Type: Report from Study
  Country: US (occurrence: US)
  Receive Date: 20160314
  Receipt Date: 20160906
  Transmission Date: 20161109
  Serious: Yes (Hospitalization, Other)
  Sender: FDA-Public Use
  Company Number: US-ACTELION-A-NJ2015-123826

PATIENT
  Age: 66 Year
  Sex: Female

DRUGS (4)
  1. OPSUMIT [Suspect]
     Active Substance: MACITENTAN
     Indication: PULMONARY ARTERIAL HYPERTENSION
     Dosage: 10 MG, QD
     Route: 048
     Dates: start: 20150202
  2. OXYCODONE [Concomitant]
     Active Substance: OXYCODONE
  3. COUMADIN [Concomitant]
     Active Substance: WARFARIN SODIUM
  4. HYDROCODONE [Concomitant]
     Active Substance: HYDROCODONE

REACTIONS (7)
  - Drug hypersensitivity [Unknown]
  - Knee arthroplasty [Unknown]
  - Insomnia [Unknown]
  - Dyspnoea exertional [Unknown]
  - Arthropathy [Unknown]
  - Nail infection [Unknown]
  - Pruritus [Unknown]
